FAERS Safety Report 24794862 (Version 2)
Quarter: 2025Q3

REPORT INFORMATION
  Report Type: Spontaneous
  Country: JP (occurrence: JP)
  Receive Date: 20241231
  Receipt Date: 20250803
  Transmission Date: 20251021
  Serious: Yes (Other)
  Sender: ALEXION PHARMACEUTICALS
  Company Number: JP-ASTRAZENECA-240147015_013120_P_1

PATIENT
  Sex: Male

DRUGS (3)
  1. TREMELIMUMAB [Suspect]
     Active Substance: TREMELIMUMAB
  2. DURVALUMAB [Suspect]
     Active Substance: DURVALUMAB
  3. Anti [Concomitant]
     Route: 065

REACTIONS (2)
  - Pancytopenia [Recovering/Resolving]
  - Pyrexia [Recovered/Resolved]
